FAERS Safety Report 8363471-4 (Version None)
Quarter: 2012Q2

REPORT INFORMATION
  Report Type: 
  Country: None (occurrence: None)
  Receive Date: 20120516
  Receipt Date: 20120508
  Transmission Date: 20120825
  Serious: Yes (Hospitalization)
  Sender: FDA-Public Use
  Company Number: JP-VERTEX PHARMACEUTICALS INC.-AE-2012-003666

PATIENT
  Age: 62 Year
  Sex: Male

DRUGS (15)
  1. RIBAVIRIN [Concomitant]
     Route: 048
     Dates: start: 20120314, end: 20120424
  2. TELAVIC (TELAPREVIR) [Suspect]
     Indication: HEPATITIS C
     Route: 048
     Dates: start: 20120207, end: 20120305
  3. TELAVIC (TELAPREVIR) [Suspect]
     Route: 048
     Dates: start: 20120306, end: 20120424
  4. RIBAVIRIN [Concomitant]
     Indication: HEPATITIS C
     Route: 048
     Dates: start: 20120207, end: 20120313
  5. ALENDRONATE SODIUM [Concomitant]
     Route: 048
  6. EPINASTINE HYDROCHLORIDE [Concomitant]
     Route: 048
  7. LANSOPRAZOLE [Concomitant]
     Route: 048
  8. SCOPOLAMINE [Concomitant]
     Route: 048
  9. REBAMIPIDE [Concomitant]
     Route: 048
  10. CEFDINIR [Concomitant]
     Route: 048
  11. PEGINTERFERON ALFA-2A [Concomitant]
     Route: 051
     Dates: start: 20120207
  12. PREDNISOLONE [Concomitant]
     Route: 048
  13. RIBAVIRIN [Concomitant]
     Route: 048
     Dates: start: 20120425
  14. TELAVIC (TELAPREVIR) [Suspect]
     Route: 048
     Dates: start: 20120425, end: 20120501
  15. TALION [Concomitant]
     Route: 048
     Dates: start: 20120207

REACTIONS (1)
  - RENAL DISORDER [None]
